FAERS Safety Report 7968585-6 (Version None)
Quarter: 2011Q4

REPORT INFORMATION
  Report Type: 
  Country: None (occurrence: None)
  Receive Date: 20111209
  Receipt Date: 20111129
  Transmission Date: 20120403
  Serious: Yes (Hospitalization, Other)
  Sender: FDA-Public Use
  Company Number: JP-JNJFOC-20070202577

PATIENT
  Sex: Male
  Weight: 68 kg

DRUGS (20)
  1. INFLIXIMAB [Suspect]
     Route: 042
     Dates: start: 20060417
  2. RABEPRAZOLE SODIUM [Concomitant]
     Indication: PROPHYLAXIS
     Dosage: START DATE: PRIOR TO 14-DEC-2005
     Route: 048
  3. RHEUMATREX [Suspect]
     Indication: RHEUMATOID ARTHRITIS
     Route: 048
     Dates: start: 20050826, end: 20071007
  4. MICONAZOLE [Concomitant]
     Dates: start: 20070205
  5. INFLIXIMAB [Suspect]
     Indication: RHEUMATOID ARTHRITIS
     Route: 042
     Dates: start: 20060821
  6. INFLIXIMAB [Suspect]
     Route: 042
     Dates: start: 20060619
  7. PREDNISOLONE [Concomitant]
     Indication: RHEUMATOID ARTHRITIS
     Dosage: START DATE: PRIOR TO 14-DEC-2005
     Route: 048
  8. ISONIAZID [Concomitant]
     Indication: PROPHYLAXIS
     Route: 048
     Dates: start: 20051226, end: 20070312
  9. YODEL S [Concomitant]
     Indication: CONSTIPATION
     Dosage: EACH DOSE
     Route: 048
     Dates: start: 20061010
  10. INFLIXIMAB [Suspect]
     Route: 042
     Dates: start: 20070312
  11. FOLIC ACID [Concomitant]
     Indication: FOLATE DEFICIENCY
     Dosage: START DATE: PRIOR TO 14-DEC-2005
     Route: 048
     Dates: start: 20050625, end: 20071002
  12. VOLTAREN [Concomitant]
     Indication: RHEUMATOID ARTHRITIS
     Dosage: START DATE: PRIOR TO 14-DEC-2005
     Route: 048
     Dates: start: 20050623
  13. INFLIXIMAB [Suspect]
     Route: 042
     Dates: start: 20061010
  14. INFLIXIMAB [Suspect]
     Route: 042
     Dates: start: 20060130
  15. INFLIXIMAB [Suspect]
     Route: 042
     Dates: start: 20060116
  16. INFLIXIMAB [Suspect]
     Route: 042
     Dates: start: 20060227
  17. INFLIXIMAB [Suspect]
     Route: 042
     Dates: start: 20061211
  18. RHEUMATREX [Suspect]
     Route: 048
     Dates: start: 20050623, end: 20050825
  19. CYTOTEC [Concomitant]
     Indication: GASTRITIS
     Dosage: DOSE: 200RG
     Route: 048
     Dates: start: 20050623
  20. FAMOTIDINE [Concomitant]
     Indication: GASTRITIS

REACTIONS (2)
  - SMALL CELL LUNG CANCER STAGE UNSPECIFIED [None]
  - OSTEOMYELITIS [None]
